FAERS Safety Report 5848019-8 (Version None)
Quarter: 2008Q3

REPORT INFORMATION
  Report Type: 
  Country: None (occurrence: None)
  Receive Date: 20080818
  Receipt Date: 20080807
  Transmission Date: 20090109
  Serious: Yes (Other)
  Sender: FDA-Public Use
  Company Number: US-JNJFOC-20080801618

PATIENT
  Sex: Male

DRUGS (5)
  1. INTELENCE [Suspect]
     Indication: HIV INFECTION
     Route: 048
  2. PREZISTA [Suspect]
     Indication: HIV INFECTION
     Route: 048
  3. RALTEGRAVIR [Suspect]
     Indication: HIV INFECTION
  4. NORVIR [Suspect]
     Indication: HIV INFECTION
  5. TRUVADA [Suspect]
     Indication: HIV INFECTION

REACTIONS (1)
  - LACTIC ACIDOSIS [None]
